FAERS Safety Report 6173784-2 (Version None)
Quarter: 2009Q2

REPORT INFORMATION
  Report Type: 
  Country: None (occurrence: None)
  Receive Date: 20090430
  Receipt Date: 20090422
  Transmission Date: 20091009
  Serious: Yes (Hospitalization)
  Sender: FDA-Public Use
  Company Number: PHHY2009FR15069

PATIENT
  Age: 78 Year
  Sex: Male

DRUGS (1)
  1. COTAREG [Suspect]
     Dosage: UNK
     Route: 048
     Dates: end: 20090101

REACTIONS (9)
  - BLOOD CREATININE INCREASED [None]
  - BLOOD PRESSURE DECREASED [None]
  - BLOOD UREA INCREASED [None]
  - DEHYDRATION [None]
  - DIARRHOEA [None]
  - GASTROENTERITIS VIRAL [None]
  - HYPOKALAEMIA [None]
  - RENAL FAILURE ACUTE [None]
  - VOMITING [None]
